FAERS Safety Report 25830012 (Version 3)
Quarter: 2025Q4

REPORT INFORMATION
  Report Type: Spontaneous
  Country: EU (occurrence: EU)
  Receive Date: 20250922
  Receipt Date: 20251112
  Transmission Date: 20260118
  Serious: Yes (Death, Hospitalization, Other)
  Sender: ASTELLAS
  Company Number: EU-ASTELLAS-2025-AER-051811

PATIENT
  Age: 83 Year
  Sex: Male

DRUGS (3)
  1. XTANDI [Suspect]
     Active Substance: ENZALUTAMIDE
     Indication: Prostate cancer
     Route: 048
  2. XTANDI [Suspect]
     Active Substance: ENZALUTAMIDE
     Dosage: 4 DF PER DAY AT ONCE
     Route: 048
     Dates: end: 20250914
  3. CLOPIDOGREL [Concomitant]
     Active Substance: CLOPIDOGREL BISULFATE
     Indication: Angioplasty
     Route: 065

REACTIONS (6)
  - Death [Fatal]
  - General physical health deterioration [Unknown]
  - Diabetes mellitus inadequate control [Unknown]
  - Food refusal [Unknown]
  - Malnutrition [Unknown]
  - Underdose [Unknown]

NARRATIVE: CASE EVENT DATE: 20250914
